FAERS Safety Report 7556642-8 (Version None)
Quarter: 2011Q2

REPORT INFORMATION
  Report Type: 
  Country: None (occurrence: None)
  Receive Date: 20110620
  Receipt Date: 20110609
  Transmission Date: 20111010
  Serious: Yes (Other)
  Sender: FDA-Public Use
  Company Number: GB-SP-2011-03374

PATIENT
  Sex: Male

DRUGS (1)
  1. IMMUCYST [Suspect]
     Indication: BLADDER CANCER STAGE 0, WITH CANCER IN SITU
     Dosage: NOT REPORTED
     Route: 065

REACTIONS (3)
  - NEOPLASM RECURRENCE [None]
  - GOUT [None]
  - JOINT SWELLING [None]
